FAERS Safety Report 9815655 (Version 1)
Quarter: 2014Q1

REPORT INFORMATION
  Report Type: Spontaneous
  Country: US (occurrence: US)
  Receive Date: 20140114
  Receipt Date: 20140114
  Transmission Date: 20141002
  Serious: No
  Sender: FDA-Public Use
  Company Number: US-009507513-1312USA010572

PATIENT
  Sex: Female

DRUGS (1)
  1. MIRALAX [Suspect]
     Indication: BOWEL PREPARATION
     Dosage: 238 G, UNKNOWN
     Route: 048
     Dates: start: 20131212

REACTIONS (3)
  - Chromaturia [Recovering/Resolving]
  - Overdose [Unknown]
  - Off label use [Unknown]
